FAERS Safety Report 14858026 (Version 2)
Quarter: 2018Q4

REPORT INFORMATION
  Report Type: Spontaneous
  Country: FR (occurrence: FR)
  Receive Date: 20180508
  Receipt Date: 20181024
  Transmission Date: 20190204
  Serious: Yes (Other)
  Sender: FDA-Public Use
  Company Number: FR-MERCK KGAA-2047348

PATIENT
  Age: 74 Year
  Sex: Female

DRUGS (1)
  1. EUTHYROX [Suspect]
     Active Substance: LEVOTHYROXINE SODIUM
     Indication: THYROID DISORDER
     Dates: start: 20170522

REACTIONS (27)
  - Fatigue [None]
  - Depression [None]
  - Tachycardia [None]
  - Arthralgia [None]
  - Cerebrovascular accident [None]
  - Migraine [None]
  - Loss of personal independence in daily activities [None]
  - Pain in extremity [None]
  - Amnesia [None]
  - Crying [None]
  - Alopecia [None]
  - Weight increased [None]
  - Anxiety [None]
  - Insomnia [None]
  - Blood thyroid stimulating hormone decreased [None]
  - Visual impairment [None]
  - Balance disorder [None]
  - Aggression [None]
  - Road traffic accident [None]
  - Depressed mood [None]
  - Thyroxine free increased [None]
  - Muscle spasms [None]
  - Abnormal behaviour [None]
  - General physical health deterioration [None]
  - Myalgia [None]
  - Disturbance in attention [None]
  - Anhedonia [None]

NARRATIVE: CASE EVENT DATE: 20170830
